FAERS Safety Report 6102865-4 (Version None)
Quarter: 2009Q1

REPORT INFORMATION
  Report Type: 
  Country: None (occurrence: None)
  Receive Date: 20090304
  Receipt Date: 20090218
  Transmission Date: 20090719
  Serious: Yes (Hospitalization)
  Sender: FDA-Public Use
  Company Number: FR-PFIZER INC-2009173229

PATIENT

DRUGS (8)
  1. SALAZOPYRIN [Suspect]
     Dosage: 500 MG, UNK
     Route: 048
     Dates: start: 20080908, end: 20081001
  2. CYCLADOL [Suspect]
     Indication: HYPERCHOLESTEROLAEMIA
     Dosage: 20 MG, UNK
     Route: 048
     Dates: start: 20080908, end: 20081001
  3. LESCOL [Suspect]
     Indication: HYPERCHOLESTEROLAEMIA
     Dosage: UNK
     Route: 048
     Dates: start: 20080908, end: 20081001
  4. ZOLPIDEM TARTRATE [Suspect]
     Dosage: UNK
     Route: 048
     Dates: start: 20080818, end: 20081011
  5. EFFEXOR [Suspect]
     Dosage: UNK
     Route: 048
     Dates: start: 20080908, end: 20081011
  6. PIROXICAM [Concomitant]
     Route: 048
     Dates: start: 20080818, end: 20080908
  7. LANSOPRAZOLE [Concomitant]
     Indication: DUODENAL ULCER
     Route: 048
     Dates: start: 20080829, end: 20080928
  8. PROPOFAN [Concomitant]
     Route: 048
     Dates: start: 20080822, end: 20080908

REACTIONS (1)
  - DRUG RASH WITH EOSINOPHILIA AND SYSTEMIC SYMPTOMS [None]
